FAERS Safety Report 8255254-0 (Version None)
Quarter: 2012Q2

REPORT INFORMATION
  Report Type: 
  Country: None (occurrence: None)
  Receive Date: 20120403
  Receipt Date: 20120320
  Transmission Date: 20120825
  Serious: Yes (Other)
  Sender: FDA-Public Use
  Company Number: JP-MYLANLABS-2012S1006336

PATIENT
  Age: 17 Year
  Sex: Female

DRUGS (13)
  1. METHOTREXATE [Suspect]
     Indication: ACUTE LYMPHOCYTIC LEUKAEMIA
     Route: 037
  2. METHOTREXATE [Suspect]
     Dosage: 500 MG/M2/DAY
     Route: 065
  3. PREDNISOLONE [Concomitant]
     Indication: ACUTE LYMPHOCYTIC LEUKAEMIA
     Dosage: 60 MG/M2/DAY ON DAYS 1-7
     Route: 065
  4. ETOPOSIDE [Suspect]
     Indication: ACUTE LYMPHOCYTIC LEUKAEMIA
     Dosage: 100 MG/M2/DAY ON DAYS 1-3
     Route: 065
  5. DAUNORUBICIN HCL [Concomitant]
     Indication: ACUTE LYMPHOCYTIC LEUKAEMIA
     Dosage: 30 MG/M2/DAY ON DAYS 1-3
     Route: 065
  6. DEXAMETHASONE [Suspect]
     Indication: ACUTE LYMPHOCYTIC LEUKAEMIA
     Dosage: 40 MG/KG/DAY ON DAYS 1-3
     Route: 065
  7. CYTARABINE [Suspect]
     Indication: ACUTE LYMPHOCYTIC LEUKAEMIA
     Dosage: 2 G/M2/DAY
     Route: 065
  8. DEXAMETHASONE [Suspect]
     Route: 037
  9. VINCRISTINE [Suspect]
     Indication: ACUTE LYMPHOCYTIC LEUKAEMIA
     Dosage: 1.3 MG/M2/DAY
     Route: 065
  10. LEUCOVORIN CALCIUM [Suspect]
     Indication: ACUTE LYMPHOCYTIC LEUKAEMIA
     Route: 065
  11. MERCAPTOPURINE [Suspect]
     Indication: ACUTE LYMPHOCYTIC LEUKAEMIA
     Dosage: 25 MG/M2/DAY ON DAYS 1-21
     Route: 065
  12. CYTARABINE [Concomitant]
     Dosage: 30 MG/M2/DAY ON DAYS 1, 8, 15 AND 22
     Route: 065
  13. VINCRISTINE [Concomitant]
     Dosage: 1.3 MG/M2/DAY ON DAYS 1, 8, 15 AND 22
     Route: 065

REACTIONS (10)
  - RASH [None]
  - HYPERGLYCAEMIA [None]
  - TOXICITY TO VARIOUS AGENTS [None]
  - DRUG INTERACTION [None]
  - INAPPROPRIATE ANTIDIURETIC HORMONE SECRETION [None]
  - RENAL IMPAIRMENT [None]
  - IMMUNOSUPPRESSANT DRUG LEVEL INCREASED [None]
  - LEUKOENCEPHALOPATHY [None]
  - SUBILEUS [None]
  - HEPATIC FUNCTION ABNORMAL [None]
